FAERS Safety Report 4968278-3 (Version None)
Quarter: 2006Q2

REPORT INFORMATION
  Report Type: 
  Country: None (occurrence: None)
  Receive Date: 20060405
  Receipt Date: 20060324
  Transmission Date: 20061013
  Serious: Yes (Death)
  Sender: FDA-Public Use
  Company Number: 2006035633

PATIENT
  Age: 73 Year
  Sex: Female

DRUGS (12)
  1. SUTENT [Suspect]
     Indication: METASTATIC RENAL CELL CARCINOMA
     Dosage: 50 MG (50 MG, 1 IN 1 D), ORAL
     Route: 048
     Dates: start: 20060214
  2. DEXAMETHASONE [Concomitant]
  3. GELAFUNDIN ^BRAUN^ (CALCIUM CHLORIDE DIHYDRATE, POLYGELATINE SUCCINATE [Concomitant]
  4. TAZOCIN (PIPERACILLIN SODIUM, TAZOBACTAM SODIUM) [Concomitant]
  5. LOSEC (OMEPRAZOLE) [Concomitant]
  6. ADRENALINE [Concomitant]
  7. ATROPINE [Concomitant]
  8. SODIUM BICARBONATE [Concomitant]
  9. SODIUM CHLORIDE [Concomitant]
  10. MORPHINE [Concomitant]
  11. DOPAMINE [Concomitant]
  12. NORADRENALINE (NOREPINEPHRINE) [Concomitant]

REACTIONS (15)
  - CARDIAC ARREST [None]
  - CEREBRAL DISORDER [None]
  - DEHYDRATION [None]
  - DIVERTICULUM [None]
  - DYSPNOEA [None]
  - FALL [None]
  - HYPOTENSION [None]
  - LOSS OF CONSCIOUSNESS [None]
  - MENTAL STATUS CHANGES [None]
  - METABOLIC DISORDER [None]
  - METASTASES TO LUNG [None]
  - METASTASIS [None]
  - RESPIRATORY DISORDER [None]
  - SEPSIS [None]
  - VENTRICULAR TACHYCARDIA [None]
